FAERS Safety Report 8232868-5 (Version None)
Quarter: 2012Q1

REPORT INFORMATION
  Report Type: 
  Country: None (occurrence: None)
  Receive Date: 20120324
  Receipt Date: 20120315
  Transmission Date: 20120608
  Serious: Yes (Hospitalization)
  Sender: FDA-Public Use
  Company Number: US-ASTRAZENECA-2012SE18197

PATIENT
  Sex: Female

DRUGS (4)
  1. HUMULIN INSULIN [Concomitant]
  2. NOVOLOG [Concomitant]
  3. LISINOPRIL [Suspect]
     Route: 048
  4. CRESTOR [Suspect]
     Route: 048

REACTIONS (4)
  - CORONARY ARTERY OCCLUSION [None]
  - BLOOD GLUCOSE INCREASED [None]
  - MALAISE [None]
  - BLOOD PRESSURE INCREASED [None]
